FAERS Safety Report 15628753 (Version 2)
Quarter: 2019Q1

REPORT INFORMATION
  Report Type: Spontaneous
  Country: US (occurrence: US)
  Receive Date: 20181116
  Receipt Date: 20190130
  Transmission Date: 20190417
  Serious: No
  Sender: FDA-Public Use
  Company Number: US-PFIZER INC-2018470222

PATIENT
  Age: 59 Year
  Sex: Female

DRUGS (2)
  1. XELJANZ [Suspect]
     Active Substance: TOFACITINIB CITRATE
     Dosage: 5 MG, 2X/DAY (5 MG 1 TABLET BY MOUTH TWICE A DAY)
  2. RESTASIS [Suspect]
     Active Substance: CYCLOSPORINE
     Dosage: UNK

REACTIONS (5)
  - Skin lesion [Unknown]
  - Dry eye [Not Recovered/Not Resolved]
  - Onychomycosis [Unknown]
  - Rash macular [Unknown]
  - Dry mouth [Not Recovered/Not Resolved]
